FAERS Safety Report 9262157 (Version 3)
Quarter: 2013Q2

REPORT INFORMATION
  Report Type: Spontaneous
  Country: FI (occurrence: FI)
  Receive Date: 20130430
  Receipt Date: 20130605
  Transmission Date: 20140414
  Serious: Yes (Hospitalization, Other)
  Sender: FDA-Public Use
  Company Number: FI-AMGEN-FINSP2013029998

PATIENT
  Age: 37 Year
  Sex: Male

DRUGS (5)
  1. ENBREL [Suspect]
     Indication: PSORIASIS
     Dosage: 50 MG, 2X/WEEK
     Route: 058
     Dates: start: 20100108, end: 20121025
  2. THYROXIN [Concomitant]
     Indication: HYPOTHYROIDISM
     Dosage: 0.05 MG, 1X/DAY
     Route: 048
     Dates: start: 20081017
  3. BISOPROLOL [Concomitant]
     Dosage: UNK
  4. CARDACE                            /00885601/ [Concomitant]
     Dosage: UNK
  5. SPIRESIS [Concomitant]
     Dosage: UNK

REACTIONS (2)
  - Congestive cardiomyopathy [Not Recovered/Not Resolved]
  - Respiratory tract infection [Unknown]
